FAERS Safety Report 19943569 (Version 1)
Quarter: 2021Q4

REPORT INFORMATION
  Report Type: Spontaneous
  Country: DE (occurrence: DE)
  Receive Date: 20211012
  Receipt Date: 20211012
  Transmission Date: 20220303
  Serious: Yes (Hospitalization)
  Sender: FDA-Public Use
  Company Number: DE-ADRED-05742-05

PATIENT
  Age: 69 Year
  Sex: Female
  Weight: 46 kg

DRUGS (13)
  1. GEMCITABINE [Suspect]
     Active Substance: GEMCITABINE
     Indication: Product used for unknown indication
     Dosage: ACCORDING TO SCHEME, SOLUTION FOR INJECTION/INFUSION
     Route: 042
  2. CARBOPLATIN [Suspect]
     Active Substance: CARBOPLATIN
     Indication: Product used for unknown indication
     Dosage: ACCORDING TO SCHEME, SOLUTION FOR INJECTION/INFUSION
     Route: 042
  3. HYDROMORPHONE [Concomitant]
     Active Substance: HYDROMORPHONE
     Dosage: 1.3 MG, REQUIREMENTS, CAPSULES
     Route: 048
  4. TEMAZEPAM [Concomitant]
     Active Substance: TEMAZEPAM
     Dosage: 10 MG, 0-0-0-1, CAPSULES
     Route: 048
  5. ACETYLCYSTEINE [Concomitant]
     Active Substance: ACETYLCYSTEINE
     Dosage: 600 MILLIGRAM (600 MG, 1-0-0-0, EFFERVESCENT TABLETS)
     Route: 048
  6. PANTOPRAZOLE [Concomitant]
     Active Substance: PANTOPRAZOLE
     Dosage: 40 MILLIGRAM (40 MG, 1-0-0-0, TABLETTEN   )
     Route: 048
  7. METAMIZOLE [Concomitant]
     Active Substance: METAMIZOLE
     Dosage: 500 MG, BEDARF, TROPFEN
     Route: 048
  8. SODIUM PICOSULFATE [Concomitant]
     Active Substance: SODIUM PICOSULFATE
     Dosage: 3.75 MILLIGRAM (3.75 MG, 1-0-0-0, TROPFEN   )
     Route: 048
  9. CHOLECALCIFEROL [Concomitant]
     Active Substance: CHOLECALCIFEROL
     Dosage: 20000 IE, ACCORDING TO SCHEME, CAPSULES
     Route: 048
  10. LEVOTHYROXINUM NATRICUM [Concomitant]
     Dosage: 0.025 MG, 1-0-0-0, TABLETTEN
     Route: 048
  11. TRAMADOL [Concomitant]
     Active Substance: TRAMADOL
     Dosage: 75 MG, NEED, ORAL SOLUTION
     Route: 048
  12. DALTEPARIN [Concomitant]
     Active Substance: DALTEPARIN
     Dosage: 2500 IE, 0-0-1-0, FERTIGSPRITZEN
     Route: 058
  13. ALGELDRATE W/MAGNESIUM HYDROXIDE [Concomitant]
     Dosage: 230 MG, BEDARF, SUSPENSION
     Route: 048

REACTIONS (5)
  - General physical health deterioration [Recovering/Resolving]
  - Oliguria [Recovering/Resolving]
  - Abdominal pain lower [Recovering/Resolving]
  - Pyrexia [Recovering/Resolving]
  - Renal impairment [Recovering/Resolving]
